FAERS Safety Report 25644836 (Version 2)
Quarter: 2025Q3

REPORT INFORMATION
  Report Type: Spontaneous
  Country: US (occurrence: US)
  Receive Date: 20250805
  Receipt Date: 20250811
  Transmission Date: 20251020
  Serious: No
  Sender: SANOFI AVENTIS
  Company Number: US-SA-2025SA227699

PATIENT
  Age: 82 Year
  Sex: Female

DRUGS (1)
  1. DUPIXENT [Suspect]
     Active Substance: DUPILUMAB
     Indication: Dermatitis atopic
     Dosage: 300 MG, QOW
     Route: 058
     Dates: start: 202503, end: 2025

REACTIONS (6)
  - Fatigue [Unknown]
  - Condition aggravated [Unknown]
  - Decreased appetite [Unknown]
  - Asthenia [Unknown]
  - Dry eye [Unknown]
  - Arthralgia [Unknown]

NARRATIVE: CASE EVENT DATE: 20250501
